FAERS Safety Report 6725213-5 (Version None)
Quarter: 2010Q2

REPORT INFORMATION
  Report Type: 
  Country: None (occurrence: None)
  Receive Date: 20100512
  Receipt Date: 20100426
  Transmission Date: 20101027
  Serious: Yes (Hospitalization)
  Sender: FDA-Public Use
  Company Number: SPV1-2010-00822

PATIENT
  Sex: Male

DRUGS (1)
  1. ELAPRASE [Suspect]
     Indication: MUCOPOLYSACCHARIDOSIS II
     Dosage: 40 ML/HR, IV DRIP
     Route: 041

REACTIONS (4)
  - HYPOXIA [None]
  - INFUSION RELATED REACTION [None]
  - RASH [None]
  - TACHYCARDIA [None]
